FAERS Safety Report 7444322-9 (Version None)
Quarter: 2011Q2

REPORT INFORMATION
  Report Type: 
  Country: None (occurrence: None)
  Receive Date: 20110429
  Receipt Date: 20110422
  Transmission Date: 20111010
  Serious: Yes (Other)
  Sender: FDA-Public Use
  Company Number: US-BAYER-2011-036271

PATIENT
  Age: 20 Year
  Sex: Female

DRUGS (2)
  1. YASMIN [Suspect]
     Dosage: UNK
     Dates: start: 20060401, end: 20070101
  2. YAZ [Suspect]
     Dosage: UNK
     Dates: start: 20070103, end: 20070427

REACTIONS (7)
  - INTRACRANIAL VENOUS SINUS THROMBOSIS [None]
  - PAIN [None]
  - EMOTIONAL DISTRESS [None]
  - INJURY [None]
  - TRANSVERSE SINUS THROMBOSIS [None]
  - SUPERIOR SAGITTAL SINUS THROMBOSIS [None]
  - JUGULAR VEIN THROMBOSIS [None]
